FAERS Safety Report 19437106 (Version 1)
Quarter: 2021Q2

REPORT INFORMATION
  Report Type: Spontaneous
  Country: ES (occurrence: ES)
  Receive Date: 20210619
  Receipt Date: 20210619
  Transmission Date: 20210717
  Serious: Yes (Other)
  Sender: FDA-Public Use
  Company Number: ES-AUROBINDO-AUR-APL-2021-025159

PATIENT
  Age: 32 Year
  Sex: Male

DRUGS (4)
  1. TIMOFTOL [Suspect]
     Active Substance: TIMOLOL MALEATE
     Indication: OCULAR HYPERTENSION
     Dosage: ONCE A DAY (TWICE A DAY)
     Route: 047
  2. COMBIGAN [Concomitant]
     Active Substance: BRIMONIDINE TARTRATE\TIMOLOL MALEATE
     Indication: OCULAR HYPERTENSION
     Dosage: UNK
     Route: 061
  3. DORZOLAMIDE+TIMOLOL [Suspect]
     Active Substance: DORZOLAMIDE\TIMOLOL
     Indication: GLAUCOMA
  4. DORZOLAMIDE+TIMOLOL [Suspect]
     Active Substance: DORZOLAMIDE\TIMOLOL
     Indication: OCULAR HYPERTENSION
     Dosage: ONCE A DAY (TWICE A DAY )
     Route: 047

REACTIONS (4)
  - Corneal oedema [Unknown]
  - Condition aggravated [Recovered/Resolved]
  - Ocular hypertension [Recovered/Resolved]
  - Drug ineffective [Unknown]
